FAERS Safety Report 20350883 (Version 3)
Quarter: 2022Q1

REPORT INFORMATION
  Report Type: Report from Study
  Country: CO (occurrence: CO)
  Receive Date: 20220119
  Receipt Date: 20220223
  Transmission Date: 20220424
  Serious: Yes (Hospitalization, Other)
  Sender: FDA-Public Use
  Company Number: CO-AMGEN-COLSL2022008027

PATIENT
  Age: 53 Year
  Sex: Female

DRUGS (1)
  1. VECTIBIX [Suspect]
     Active Substance: PANITUMUMAB
     Indication: Colorectal cancer metastatic
     Dosage: 350 MILLIGRAM, Q2WK
     Route: 042
     Dates: start: 20211201

REACTIONS (10)
  - Rectal haemorrhage [Recovering/Resolving]
  - Pain [Recovering/Resolving]
  - Injury [Unknown]
  - Treatment failure [Not Recovered/Not Resolved]
  - Rash [Unknown]
  - Acne [Not Recovered/Not Resolved]
  - Alopecia [Not Recovered/Not Resolved]
  - Stomatitis [Not Recovered/Not Resolved]
  - Dry throat [Not Recovered/Not Resolved]
  - Influenza [Not Recovered/Not Resolved]

NARRATIVE: CASE EVENT DATE: 20220108
